FAERS Safety Report 8900195 (Version 2)
Quarter: 2012Q4

REPORT INFORMATION
  Report Type: 
  Country: AU (occurrence: AU)
  Receive Date: 20121109
  Receipt Date: 20121206
  Transmission Date: 20130627
  Serious: Yes (Death, Hospitalization, Other)
  Sender: FDA-Public Use
  Company Number: AU-BAYER-2012-115044

PATIENT
  Age: 41 Year
  Sex: Male
  Weight: 60 kg

DRUGS (2)
  1. NEXAVAR [Suspect]
     Indication: CARCINOMA HEPATOCELLULAR
     Dosage: 200 mg, QD
     Route: 048
     Dates: start: 20120925
  2. NEXAVAR [Suspect]
     Indication: CARCINOMA HEPATOCELLULAR
     Dosage: 200 mg, BID
     Route: 048
     Dates: start: 20120927, end: 20121001

REACTIONS (1)
  - Tumour lysis syndrome [Fatal]
